FAERS Safety Report 4359472-3 (Version None)
Quarter: 2004Q2

REPORT INFORMATION
  Report Type: 
  Country: None (occurrence: None)
  Receive Date: 20040512
  Receipt Date: 20040429
  Transmission Date: 20050107
  Serious: Yes (Hospitalization)
  Sender: FDA-Public Use
  Company Number: US-JNJFOC-20040500741

PATIENT
  Age: 10 Year
  Sex: Male

DRUGS (1)
  1. CONCERTA [Suspect]
     Dosage: 18 MG, 1 IN 1 DAY, ORAL
     Route: 048

REACTIONS (2)
  - CHOLECYSTITIS ACUTE [None]
  - DEHYDRATION [None]
